FAERS Safety Report 4948677-6 (Version None)
Quarter: 2006Q1

REPORT INFORMATION
  Report Type: 
  Country: None (occurrence: None)
  Receive Date: 20060207
  Receipt Date: 20050720
  Transmission Date: 20060701
  Serious: Yes (Life-Threatening)
  Sender: FDA-Public Use
  Company Number: 245577

PATIENT
  Age: 30 Year
  Sex: Female
  Weight: 59.9 kg

DRUGS (3)
  1. NOVOLOG [Suspect]
     Indication: DIABETES MELLITUS
     Dosage: SINGLE, SUBCUTANEOUS
     Route: 058
     Dates: start: 20050710, end: 20050710
  2. HUMALOG [Concomitant]
  3. MINI-MED PARADIGM INSULIN PUMP [Concomitant]

REACTIONS (1)
  - ANAPHYLACTIC SHOCK [None]
